FAERS Safety Report 8595057-0 (Version None)
Quarter: 2012Q3

REPORT INFORMATION
  Report Type: 
  Country: None (occurrence: None)
  Receive Date: 20120815
  Receipt Date: 20120808
  Transmission Date: 20120928
  Serious: Yes (Other)
  Sender: FDA-Public Use
  Company Number: US-PFIZER INC-2012193689

PATIENT
  Age: 36 Year
  Sex: Female

DRUGS (13)
  1. RELPAX [Suspect]
     Indication: MIGRAINE
     Dosage: 40 MG, PRN
     Route: 048
  2. IMITREX [Concomitant]
     Dosage: 100 MG, 1X/DAY
     Route: 048
  3. LAMICTAL [Concomitant]
     Dosage: 200 MG, 1 TAB Q.H.S.
     Route: 048
  4. TOPAMAX [Concomitant]
     Dosage: 50 MG, 2X/DAY
     Route: 048
  5. GABAPENTIN [Concomitant]
     Dosage: 800 MG, Q A.M AND 1200 MG Q H.S., 2X/DAY (1 TAB ORALLY 2 TIMES A DAY)
     Route: 048
  6. OXYCONTIN [Concomitant]
     Dosage: 10 MG, EVERY 12 HOURS
     Route: 048
  7. PLAQUENIL [Concomitant]
     Dosage: 400 MG, 2X/DAY (200MG, 2TABS ORALLY 2 TIMES A DAY)
     Route: 048
  8. ALREX [Concomitant]
     Dosage: 0.2% SUSPENSION, 1 GTT IN EACH AFFECTED EYE, 4X/DAY
     Route: 047
  9. PREDNISONE [Concomitant]
     Dosage: 10 MG, 1X/DAY
     Route: 048
  10. GABAPENTIN [Concomitant]
     Dosage: UNK
  11. AMOXICILLIN [Concomitant]
     Dosage: 500 MG, 3X/DAY
     Route: 048
  12. OXYCODONE HCL AND ACETAMINOPHEN [Concomitant]
     Dosage: 325MG-10MG, 4X/DAY
     Route: 048
  13. ROBAXIN [Concomitant]
     Dosage: 750 MG, 2 TABS ORALLY 3 TIMES A DAY PRN
     Route: 048

REACTIONS (5)
  - ANXIETY [None]
  - MIGRAINE [None]
  - SJOGREN'S SYNDROME [None]
  - FIBROMYALGIA [None]
  - BIPOLAR DISORDER [None]
